FAERS Safety Report 6218525-5 (Version None)
Quarter: 2009Q2

REPORT INFORMATION
  Report Type: 
  Country: None (occurrence: None)
  Receive Date: 20090604
  Receipt Date: 20090604
  Transmission Date: 20091009
  Serious: No
  Sender: FDA-Public Use
  Company Number: None

PATIENT
  Age: 55 Year
  Sex: Male
  Weight: 72.5755 kg

DRUGS (1)
  1. VERAPAMIL [Suspect]
     Indication: HYPERTENSION
     Dosage: 1 QD PO 3 1/2 MONTHS
     Route: 048
     Dates: start: 20090219, end: 20090530

REACTIONS (2)
  - ARTHRALGIA [None]
  - MYALGIA [None]
